FAERS Safety Report 9018510 (Version 1)
Quarter: 2013Q1

REPORT INFORMATION
  Report Type: Spontaneous
  Country: US (occurrence: None)
  Receive Date: 20130111
  Receipt Date: 20130111
  Transmission Date: 20140127
  Serious: No
  Sender: FDA-Public Use
  Company Number: None

PATIENT
  Age: 60 Year
  Sex: Male

DRUGS (2)
  1. ISOFLURANE [Suspect]
     Dates: start: 20050221, end: 20050221
  2. PROPOFOL [Suspect]
     Dates: start: 20050221, end: 20050221

REACTIONS (16)
  - Palpitations [None]
  - Abdominal pain [None]
  - Weight decreased [None]
  - Nausea [None]
  - Decreased appetite [None]
  - Hepatocellular injury [None]
  - Aspartate aminotransferase increased [None]
  - Alanine aminotransferase increased [None]
  - Rash [None]
  - Pruritus [None]
  - Drug-induced liver injury [None]
  - Yellow skin [None]
  - Nerve injury [None]
  - Procedural complication [None]
  - Muscular weakness [None]
  - Hypoaesthesia [None]
